FAERS Safety Report 20518503 (Version 1)
Quarter: 2022Q1

REPORT INFORMATION
  Report Type: Spontaneous
  Country: US (occurrence: None)
  Receive Date: 20220224
  Receipt Date: 20220224
  Transmission Date: 20220423
  Serious: No
  Sender: FDA-Public Use
  Company Number: None

PATIENT
  Sex: Male
  Weight: 77.11 kg

DRUGS (14)
  1. METHOTREXATE (METHOTREXATE SODIUM) [Suspect]
     Active Substance: METHOTREXATE SODIUM
     Dosage: FREQUENCY : WEEKLY;?
     Route: 048
  2. MERCAPTOPURINE [Suspect]
     Active Substance: MERCAPTOPURINE
     Dosage: FREQUENCY : DAILY;?
     Route: 048
  3. ACYCLOVIR [Concomitant]
     Active Substance: ACYCLOVIR
  4. ATORVASTATIN [Concomitant]
     Active Substance: ATORVASTATIN
  5. ATOVAQUONE [Concomitant]
     Active Substance: ATOVAQUONE
  6. ATROVENT [Concomitant]
     Active Substance: IPRATROPIUM BROMIDE
  7. BENEFIBER [Concomitant]
     Active Substance: STARCH, WHEAT
  8. FAMOTIDINE [Concomitant]
     Active Substance: FAMOTIDINE
  9. PREDNISONE [Concomitant]
     Active Substance: PREDNISONE
  10. PREGABALIN [Concomitant]
     Active Substance: PREGABALIN
  11. PROCHLORPERAZINE [Concomitant]
     Active Substance: PROCHLORPERAZINE
  12. RAPAFLO [Concomitant]
     Active Substance: SILODOSIN
  13. URSODIOL [Concomitant]
     Active Substance: URSODIOL
  14. VITAMIN B6 [Concomitant]
     Active Substance: PYRIDOXINE HYDROCHLORIDE

REACTIONS (2)
  - Therapy interrupted [None]
  - Neutrophil count decreased [None]
